FAERS Safety Report 9477831 (Version 1)
Quarter: 2013Q3

REPORT INFORMATION
  Report Type: Spontaneous
  Country: GB (occurrence: None)
  Receive Date: 20130822
  Receipt Date: 20130822
  Transmission Date: 20140515
  Serious: Yes (Other)
  Sender: FDA-Public Use
  Company Number: AUR-APL-2013-06862

PATIENT
  Age: 50 Year
  Sex: Female
  Weight: 100.5 kg

DRUGS (3)
  1. FLUOXETINE (FLUOXETINE) [Suspect]
     Indication: PRODUCT USED FOR UNKNOWN INDICATION
     Dates: start: 20130513, end: 20130602
  2. LACTULOSE (LACTULOSE) [Concomitant]
  3. SENNA (SENNA ALEXANDRINA) [Concomitant]

REACTIONS (1)
  - Restless legs syndrome [None]
